FAERS Safety Report 8597909-4 (Version None)
Quarter: 2012Q3

REPORT INFORMATION
  Report Type: 
  Country: None (occurrence: None)
  Receive Date: 20120816
  Receipt Date: 20120807
  Transmission Date: 20120928
  Serious: Yes (Other)
  Sender: FDA-Public Use
  Company Number: US-ASTELLAS-2012US006065

PATIENT
  Sex: Female

DRUGS (3)
  1. PREDNISONE TAB [Concomitant]
     Indication: PRODUCT USED FOR UNKNOWN INDICATION
     Dosage: 70 MG, UID/QD
     Route: 048
  2. CELLCEPT [Concomitant]
     Indication: PRODUCT USED FOR UNKNOWN INDICATION
     Dosage: 1 G, BID
     Route: 048
  3. PROGRAF [Suspect]
     Indication: BONE MARROW TRANSPLANT
     Dosage: 3 MG, BID
     Route: 048
     Dates: start: 20090101

REACTIONS (2)
  - OFF LABEL USE [None]
  - GRAFT VERSUS HOST DISEASE [None]
